FAERS Safety Report 5063840-4 (Version None)
Quarter: 2006Q3

REPORT INFORMATION
  Report Type: 
  Country: None (occurrence: None)
  Receive Date: 20060726
  Receipt Date: 20060726
  Transmission Date: 20061208
  Serious: Yes (Disabling)
  Sender: FDA-Public Use
  Company Number: None

PATIENT
  Sex: Male
  Weight: 73 kg

DRUGS (6)
  1. LEVITRA [Suspect]
     Indication: ERECTILE DYSFUNCTION
     Dosage: 5MG PRN PO
     Route: 048
     Dates: start: 20060306, end: 20060717
  2. OMEGA-3 [Concomitant]
  3. POLYUNSAT FATTY ACID [Concomitant]
  4. PSYLLIUM [Concomitant]
  5. IBUPROFEN [Concomitant]
  6. CAPSAICIN [Concomitant]

REACTIONS (2)
  - DRUG INEFFECTIVE [None]
  - HEADACHE [None]
